FAERS Safety Report 7962061-2 (Version None)
Quarter: 2011Q4

REPORT INFORMATION
  Report Type: 
  Country: None (occurrence: None)
  Receive Date: 20111207
  Receipt Date: 20111205
  Transmission Date: 20120403
  Serious: No
  Sender: FDA-Public Use
  Company Number: US-PFIZER INC-2011297695

PATIENT
  Sex: Male
  Weight: 97.506 kg

DRUGS (8)
  1. VITAMIN B-12 [Concomitant]
     Dosage: UNK
  2. LYRICA [Suspect]
     Indication: MULTIPLE SCLEROSIS
     Dosage: 75 MG, 2X/DAY
     Route: 048
     Dates: start: 20111203
  3. ZOLPIDEM [Concomitant]
     Indication: INSOMNIA
     Dosage: UNK, AS NEEDED
  4. BUPROPION [Concomitant]
     Indication: INSOMNIA
     Dosage: 300 MG, DAILY
  5. VITAMIN D [Concomitant]
     Dosage: UNK
  6. REBIF [Concomitant]
     Indication: MULTIPLE SCLEROSIS
     Dosage: UNKNOWN DOSE THREE TIMES A WEEK
  7. CYMBALTA [Concomitant]
     Indication: PAIN IN EXTREMITY
     Dosage: 30 MG, DAILY
  8. TRAZODONE [Concomitant]
     Dosage: 50 MG, DAILY

REACTIONS (4)
  - SOMNOLENCE [None]
  - DIZZINESS [None]
  - FEELING ABNORMAL [None]
  - PAIN IN EXTREMITY [None]
